FAERS Safety Report 8127044-0 (Version None)
Quarter: 2011Q4

REPORT INFORMATION
  Report Type: 
  Country: None (occurrence: None)
  Receive Date: 20111227
  Receipt Date: 20111007
  Transmission Date: 20120403
  Serious: No
  Sender: FDA-Public Use
  Company Number: PHHY2010US79295

PATIENT
  Age: 46 Year
  Sex: Female
  Weight: 55.9 kg

DRUGS (7)
  1. PROVIGIL (MODAFINIL) ONGOING [Concomitant]
  2. BACLOFEN (BACLOFEN) ONGOING [Concomitant]
  3. HYDROCHLOROTHIAZIDE (HYDROCHLOROTHIAZIDE) ONGOING [Concomitant]
  4. MINOCYCLIN (MINOCYCLINE HYDROCHLORIDE) ONGOING [Concomitant]
  5. GILENYA [Suspect]
     Indication: MULTIPLE SCLEROSIS
     Dosage: 0.5 MG, QD, ORAL
     Route: 048
     Dates: start: 20101117
  6. LAMICTAL (LAMOTRIGINE), 25 MG ONGOING [Concomitant]
  7. GABAPENTIN (GABAPENTIN) ONGOING [Concomitant]

REACTIONS (5)
  - FEELING HOT [None]
  - WHITE BLOOD CELL COUNT DECREASED [None]
  - INFLUENZA [None]
  - ORAL HERPES [None]
  - DYSPHAGIA [None]
